FAERS Safety Report 6129993-1 (Version None)
Quarter: 2009Q1

REPORT INFORMATION
  Report Type: 
  Country: None (occurrence: None)
  Receive Date: 20090323
  Receipt Date: 20090323
  Transmission Date: 20090719
  Serious: Yes (Life-Threatening)
  Sender: FDA-Public Use
  Company Number: None

PATIENT
  Age: 62 Year
  Sex: Female
  Weight: 74.8435 kg

DRUGS (1)
  1. BOTOX [Suspect]
     Indication: ESSENTIAL TREMOR
     Dosage: UNKNOWN ONCE OTHER
     Route: 050
     Dates: start: 20081226, end: 20081226

REACTIONS (7)
  - ASPHYXIA [None]
  - BOWEL MOVEMENT IRREGULARITY [None]
  - COUGH [None]
  - DEHYDRATION [None]
  - DYSPHAGIA [None]
  - INSOMNIA [None]
  - SPEECH DISORDER [None]
